FAERS Safety Report 5610733-7 (Version None)
Quarter: 2008Q1

REPORT INFORMATION
  Report Type: 
  Country: None (occurrence: None)
  Receive Date: 20080201
  Receipt Date: 20080122
  Transmission Date: 20080703
  Serious: Yes (Hospitalization)
  Sender: FDA-Public Use
  Company Number: PHBS2008ES01133

PATIENT
  Age: 82 Year
  Sex: Female

DRUGS (4)
  1. VADITON PROLIB [Suspect]
     Indication: DYSLIPIDAEMIA
     Dosage: 8 MG/D
     Route: 065
  2. SIMVASTATIN [Suspect]
     Indication: DYSLIPIDAEMIA
     Dosage: UNK, UNK
     Route: 065
     Dates: start: 20070410, end: 20070510
  3. CALCIUM GLUCONATE [Concomitant]
     Indication: OSTEOPOROSIS
     Route: 065
  4. ACTONEL [Concomitant]
     Indication: OSTEOPOROSIS
     Dosage: 35 MG WEEKLY
     Route: 065

REACTIONS (3)
  - BLOOD AMYLASE INCREASED [None]
  - DRUG INTERACTION [None]
  - PANCREATITIS ACUTE [None]
